FAERS Safety Report 12598476 (Version 3)
Quarter: 2018Q2

REPORT INFORMATION
  Report Type: Report from Study
  Country: JP (occurrence: JP)
  Receive Date: 20160727
  Receipt Date: 20180626
  Transmission Date: 20180711
  Serious: Yes (Death, Hospitalization, Other)
  Sender: FDA-Public Use
  Company Number: JP-INCYTE CORPORATION-2016IN004464

PATIENT

DRUGS (5)
  1. JAKAVI [Suspect]
     Active Substance: RUXOLITINIB
     Indication: MYELOFIBROSIS
     Dosage: 5 MG, BID
     Route: 048
     Dates: start: 20160429, end: 20160516
  2. JAKAVI [Suspect]
     Active Substance: RUXOLITINIB
     Dosage: ALTERNATE-DAY ADMINISTRATION OF JAKAVI WITH THE DOSE OF 5 MG AND 10 MG
     Route: 048
     Dates: start: 20160607, end: 20160616
  3. JAKAVI [Suspect]
     Active Substance: RUXOLITINIB
     Dosage: 15 MG, UNK
     Route: 048
     Dates: start: 20160517, end: 20160531
  4. JAKAVI [Suspect]
     Active Substance: RUXOLITINIB
     Dosage: 5 MG, BID
     Route: 048
     Dates: start: 20160601, end: 20160606
  5. PREDONINE [Suspect]
     Active Substance: PREDNISOLONE
     Indication: PYREXIA
     Dosage: 20 MG, UNK
     Route: 048
     Dates: end: 201606

REACTIONS (6)
  - Myelofibrosis [Not Recovered/Not Resolved]
  - Platelet count decreased [Unknown]
  - Mucormycosis [Fatal]
  - White blood cell count decreased [Unknown]
  - Concomitant disease aggravated [Unknown]
  - Pyrexia [Unknown]

NARRATIVE: CASE EVENT DATE: 20160517
